FAERS Safety Report 6116774-8 (Version None)
Quarter: 2009Q1

REPORT INFORMATION
  Report Type: 
  Country: None (occurrence: None)
  Receive Date: 20090314
  Receipt Date: 20081226
  Transmission Date: 20090719
  Serious: No
  Sender: FDA-Public Use
  Company Number: US-ABBOTT-08P-163-0494931-00

PATIENT
  Sex: Female
  Weight: 67.192 kg

DRUGS (3)
  1. HUMIRA [Suspect]
     Indication: ARTHRITIS
     Dates: start: 20081001
  2. BUPROPION HCL [Concomitant]
     Indication: DEPRESSION
  3. CITALOPRAM HYDROBROMIDE [Concomitant]
     Indication: DEPRESSION
     Dosage: 1/2 PILL A DAY

REACTIONS (1)
  - FEELING ABNORMAL [None]
